FAERS Safety Report 4817448-3 (Version None)
Quarter: 2005Q4

REPORT INFORMATION
  Report Type: 
  Country: None (occurrence: None)
  Receive Date: 20051101
  Receipt Date: 20050414
  Transmission Date: 20060501
  Serious: Yes (Death, Other)
  Sender: FDA-Public Use
  Company Number: US-MERCK-0504USA02996

PATIENT
  Age: 43 Year
  Sex: Male
  Weight: 82 kg

DRUGS (5)
  1. VIOXX [Suspect]
     Indication: ARTHRALGIA
     Route: 048
     Dates: start: 20020901, end: 20040301
  2. VIOXX [Suspect]
     Indication: INJURY
     Route: 048
     Dates: start: 20020901, end: 20040301
  3. PRILOSEC [Concomitant]
     Route: 048
  4. PEPCID [Concomitant]
     Route: 048
  5. FELDENE [Concomitant]
     Route: 065

REACTIONS (4)
  - CARDIOPULMONARY FAILURE [None]
  - CIRCULATORY COLLAPSE [None]
  - DYSPEPSIA [None]
  - MYOCARDIAL INFARCTION [None]
